FAERS Safety Report 16457838 (Version 1)
Quarter: 2019Q2

REPORT INFORMATION
  Report Type: Spontaneous
  Country: GB (occurrence: GB)
  Receive Date: 20190620
  Receipt Date: 20190620
  Transmission Date: 20190711
  Serious: Yes (Other)
  Sender: FDA-Public Use
  Company Number: GB-MYLANLABS-2019M1056794

PATIENT
  Age: 24 Year
  Sex: Female
  Weight: 64.86 kg

DRUGS (1)
  1. ZIDOVAL GEL [Suspect]
     Active Substance: METRONIDAZOLE
     Indication: BACTERIAL VAGINOSIS
     Dosage: 5 MILLILITER
     Route: 067
     Dates: start: 20181206

REACTIONS (2)
  - Vaginal haemorrhage [Recovered/Resolved]
  - Polymenorrhoea [Recovered/Resolved]

NARRATIVE: CASE EVENT DATE: 20181208
